FAERS Safety Report 22893019 (Version 8)
Quarter: 2023Q4

REPORT INFORMATION
  Report Type: Report from Study
  Country: CA (occurrence: CA)
  Receive Date: 20230901
  Receipt Date: 20231229
  Transmission Date: 20240110
  Serious: Yes (Other)
  Sender: FDA-Public Use
  Company Number: CA-MYLANLABS-2023M1016894

PATIENT

DRUGS (7)
  1. HULIO [Suspect]
     Active Substance: ADALIMUMAB-FKJP
     Indication: Crohn^s disease
     Dosage: 40 MILLIGRAM, BIWEEKLY
     Route: 058
     Dates: start: 20230116
  2. HULIO [Suspect]
     Active Substance: ADALIMUMAB-FKJP
     Indication: Anal fistula
     Dosage: 40 MILLIGRAM, QW (WEEKLY)
     Route: 058
  3. HULIO [Suspect]
     Active Substance: ADALIMUMAB-FKJP
     Dosage: 40 MILLIGRAM, BIWEEKLY (START DATE: ??-JUN-2023EVERY OTHER WEEK)
     Route: 058
  4. HULIO [Suspect]
     Active Substance: ADALIMUMAB-FKJP
     Dosage: 40 MILLIGRAM, BIWEEKLY
     Route: 058
  5. HULIO [Suspect]
     Active Substance: ADALIMUMAB-FKJP
     Dosage: UNK UNK, BIWEEKLY
     Route: 058
     Dates: start: 202304
  6. IMURAN [Concomitant]
     Active Substance: AZATHIOPRINE
     Indication: Product used for unknown indication
     Dosage: UNK
     Route: 065
  7. MORPHINE [Concomitant]
     Active Substance: MORPHINE
     Indication: Product used for unknown indication
     Dosage: UNK
     Route: 065

REACTIONS (29)
  - Inflammatory bowel disease [Unknown]
  - Nephrolithiasis [Unknown]
  - Feeling hot [Unknown]
  - Feeling abnormal [Unknown]
  - Irritable bowel syndrome [Unknown]
  - Malaise [Unknown]
  - Pharyngitis streptococcal [Unknown]
  - Drug intolerance [Unknown]
  - Oropharyngeal pain [Unknown]
  - Throat irritation [Unknown]
  - Lymphadenopathy [Unknown]
  - Palpitations [Unknown]
  - Thyroid cyst [Unknown]
  - Post-traumatic stress disorder [Unknown]
  - Anxiety [Unknown]
  - Adenomyosis [Unknown]
  - Arthralgia [Unknown]
  - Muscular weakness [Unknown]
  - Abdominal pain [Unknown]
  - Hyperhidrosis [Unknown]
  - Fatigue [Unknown]
  - Constipation [Unknown]
  - Oral candidiasis [Unknown]
  - Fistula [Unknown]
  - Off label use [Unknown]
  - Product dose omission issue [Unknown]
  - Extra dose administered [Unknown]
  - Product prescribing issue [Unknown]
  - Drug ineffective [Unknown]

NARRATIVE: CASE EVENT DATE: 20230522
